FAERS Safety Report 14014306 (Version 2)
Quarter: 2017Q4

REPORT INFORMATION
  Report Type: Spontaneous
  Country: US (occurrence: US)
  Receive Date: 20170927
  Receipt Date: 20171018
  Transmission Date: 20180321
  Serious: No
  Sender: FDA-Public Use
  Company Number: US-CELGENEUS-USA-20170904789

PATIENT
  Sex: Male

DRUGS (2)
  1. OTEZLA [Suspect]
     Active Substance: APREMILAST
     Indication: DRUG ADMINISTERED TO PATIENT OF INAPPROPRIATE AGE
  2. OTEZLA [Suspect]
     Active Substance: APREMILAST
     Indication: PRODUCT USED FOR UNKNOWN INDICATION
     Route: 048
     Dates: start: 2017

REACTIONS (4)
  - Accidental exposure to product by child [Unknown]
  - Pain [Unknown]
  - Vomiting [Unknown]
  - Packaging design issue [Unknown]

NARRATIVE: CASE EVENT DATE: 2017
